FAERS Safety Report 15676930 (Version 1)
Quarter: 2018Q4

REPORT INFORMATION
  Report Type: Spontaneous
  Country: US (occurrence: US)
  Receive Date: 20181130
  Receipt Date: 20181130
  Transmission Date: 20190205
  Serious: No
  Sender: FDA-Public Use
  Company Number: US-PFIZER INC-2018485020

PATIENT
  Age: 33 Year
  Sex: Female

DRUGS (2)
  1. GABAPENTIN. [Suspect]
     Active Substance: GABAPENTIN
     Indication: PELVIC PAIN
     Dosage: 100 MG, UNK
  2. GABAPENTIN. [Suspect]
     Active Substance: GABAPENTIN
     Dosage: 900 MG, 1X/DAY (300MG THREE CAPSULES ONCE A DAY BY MOUTH)
     Route: 048
     Dates: start: 2017, end: 20181005

REACTIONS (5)
  - Feeling abnormal [Unknown]
  - Memory impairment [Unknown]
  - Somnolence [Unknown]
  - Weight increased [Unknown]
  - Product use in unapproved indication [Unknown]

NARRATIVE: CASE EVENT DATE: 2017
